FAERS Safety Report 9657089 (Version 1)
Quarter: 2013Q4

REPORT INFORMATION
  Report Type: Spontaneous
  Country: US (occurrence: US)
  Receive Date: 20131030
  Receipt Date: 20131030
  Transmission Date: 20140711
  Serious: Yes (Other)
  Sender: FDA-Public Use
  Company Number: PHEH2013US022577

PATIENT
  Sex: Female

DRUGS (7)
  1. DIOVAN [Suspect]
     Dosage: 320 MG, BID
  2. DIOVAN [Suspect]
     Dosage: 160 MG, BID
  3. METOPROLOL [Concomitant]
     Dosage: 200 MG, QD
  4. CARDIZEM [Concomitant]
     Dosage: 1 UKN, DAILY
  5. DIURETICS [Concomitant]
     Dosage: 1 DF, DAILY
  6. BETA BLOCKING AGENTS [Concomitant]
  7. ACE INHIBITOR NOS [Concomitant]

REACTIONS (3)
  - Cardiac failure congestive [Unknown]
  - Heart valve incompetence [Unknown]
  - Blood pressure decreased [Unknown]
